FAERS Safety Report 18189718 (Version 2)
Quarter: 2020Q4

REPORT INFORMATION
  Report Type: Report from Study
  Country: None (occurrence: US)
  Receive Date: 20200825
  Receipt Date: 20201019
  Transmission Date: 20210113
  Serious: Yes (Other)
  Sender: FDA-Public Use
  Company Number: US-ABBVIE-20K-163-3443099-00

PATIENT
  Age: 51 Year
  Sex: Female

DRUGS (4)
  1. HUMIRA [Suspect]
     Active Substance: ADALIMUMAB
     Route: 058
     Dates: start: 20200609, end: 202009
  2. HUMIRA [Suspect]
     Active Substance: ADALIMUMAB
     Indication: CROHN^S DISEASE
     Route: 058
     Dates: start: 2015
  3. HUMIRA [Suspect]
     Active Substance: ADALIMUMAB
     Indication: COLITIS ULCERATIVE
     Route: 058
     Dates: end: 2016
  4. HUMIRA [Suspect]
     Active Substance: ADALIMUMAB
     Route: 058
     Dates: start: 202005, end: 2020

REACTIONS (17)
  - Feeling abnormal [Not Recovered/Not Resolved]
  - Crohn^s disease [Unknown]
  - Stomatitis [Not Recovered/Not Resolved]
  - Discomfort [Unknown]
  - Post procedural infection [Unknown]
  - Anastomotic complication [Unknown]
  - Frequent bowel movements [Unknown]
  - Clostridium difficile infection [Unknown]
  - Fistula [Not Recovered/Not Resolved]
  - Weight decreased [Not Recovered/Not Resolved]
  - Infection [Unknown]
  - Drug ineffective [Unknown]
  - Muscle spasms [Unknown]
  - Pyoderma [Not Recovered/Not Resolved]
  - Colitis [Unknown]
  - Rectal discharge [Unknown]
  - Diarrhoea [Not Recovered/Not Resolved]

NARRATIVE: CASE EVENT DATE: 2018
